FAERS Safety Report 15386958 (Version 2)
Quarter: 2018Q3

REPORT INFORMATION
  Report Type: Spontaneous
  Country: JP (occurrence: JP)
  Receive Date: 20180914
  Receipt Date: 20180920
  Transmission Date: 20181010
  Serious: Yes (Other)
  Sender: FDA-Public Use
  Company Number: JP-PFIZER INC-2018367713

PATIENT
  Age: 55 Year
  Sex: Female

DRUGS (6)
  1. BEVACIZUMAB. [Interacting]
     Active Substance: BEVACIZUMAB
     Dosage: 15 MG/KG, EVERY 3 WEEKS (ON DAY 1)
  2. PEGYLATED LIPOSOMAL DOXORUBICIN [Concomitant]
     Active Substance: DOXORUBICIN
     Indication: OVARIAN CLEAR CELL CARCINOMA
     Dosage: 30 MG/M2, CYCLIC (THREE CYCLES)
  3. BEVACIZUMAB. [Interacting]
     Active Substance: BEVACIZUMAB
     Indication: OVARIAN CLEAR CELL CARCINOMA
     Dosage: 15 MG/KG, CYCLIC (ON DAY 1 EVERY FOUR WEEKS)
  4. TOPOTECAN [Concomitant]
     Active Substance: TOPOTECAN HYDROCHLORIDE
     Indication: OVARIAN CLEAR CELL CARCINOMA
     Dosage: 1.25 MG/M2, EVERY 3 WEEKS (ON DAYS 1?5)
  5. PACLITAXEL. [Suspect]
     Active Substance: PACLITAXEL
     Indication: OVARIAN CLEAR CELL CARCINOMA
     Dosage: 80 MG/M2 CYCLIC ON DAY 1, 8, AND 15 (EVERY FOUR WEEKS)
  6. CARBOPLATIN. [Concomitant]
     Active Substance: CARBOPLATIN
     Indication: OVARIAN CLEAR CELL CARCINOMA
     Dosage: UNK, CYCLIC ((AUC 5) EVERY FOUR WEEKS)

REACTIONS (2)
  - Intestinal ischaemia [Recovered/Resolved]
  - Drug interaction [Unknown]
